FAERS Safety Report 10544150 (Version 1)
Quarter: 2014Q4

REPORT INFORMATION
  Report Type: Spontaneous
  Country: US (occurrence: None)
  Receive Date: 20141010
  Receipt Date: 20141010
  Transmission Date: 20150529
  Serious: No
  Sender: FDA-Public Use
  Company Number: 163-POMAL-14072678

PATIENT
  Age: 74 Year
  Sex: Female
  Weight: 61.2 kg

DRUGS (6)
  1. DEXAMETHASONE (DEXAMETHSONE) [Concomitant]
  2. HYDROCHLOROTHIAZIDE (HYDROCHLOROTHIAZIDE) [Concomitant]
     Active Substance: HYDROCHLOROTHIAZIDE
  3. AZITHROMYCIN [Concomitant]
     Active Substance: AZITHROMYCIN ANHYDROUS
  4. POMALYST [Suspect]
     Active Substance: POMALIDOMIDE
     Indication: PLASMA CELL MYELOMA
     Route: 048
     Dates: start: 20131011
  5. ADVAIR HFA (SERETIDE MITE) [Concomitant]
  6. PROMETHAZINE WITH CODEINE (PROMETHAZINE W/CODEINE) [Concomitant]

REACTIONS (2)
  - Therapeutic response changed [None]
  - Malaise [None]
